FAERS Safety Report 7864332-7 (Version None)
Quarter: 2011Q4

REPORT INFORMATION
  Report Type: 
  Country: None (occurrence: None)
  Receive Date: 20111028
  Receipt Date: 20111014
  Transmission Date: 20120403
  Serious: Yes (Other)
  Sender: FDA-Public Use
  Company Number: HR-MYLANLABS-2011S1021887

PATIENT
  Age: 57 Year
  Sex: Female

DRUGS (3)
  1. CIPROFLOXACIN [Suspect]
     Indication: PYELONEPHRITIS ACUTE
     Route: 065
  2. DICLOFENAC POTASSIUM [Concomitant]
     Indication: PYELONEPHRITIS ACUTE
     Dosage: AS NEEDED
     Route: 065
  3. ACETAMINOPHEN [Concomitant]
     Indication: PYELONEPHRITIS ACUTE
     Dosage: AS NEEDED
     Route: 065

REACTIONS (1)
  - DRUG RASH WITH EOSINOPHILIA AND SYSTEMIC SYMPTOMS [None]
